FAERS Safety Report 6285270-X (Version None)
Quarter: 2009Q3

REPORT INFORMATION
  Report Type: 
  Country: None (occurrence: None)
  Receive Date: 20090723
  Receipt Date: 20090714
  Transmission Date: 20100115
  Serious: Yes (Death)
  Sender: FDA-Public Use
  Company Number: 2009AL004694

PATIENT
  Age: 70 Year
  Sex: Female

DRUGS (4)
  1. RAMIPRIL [Suspect]
     Indication: HYPERTENSION
     Dosage: 5 MG; QD; PO
     Route: 048
     Dates: start: 20090604, end: 20090620
  2. ATENOR [Concomitant]
  3. CENTYL MITE W/POTASSIUM CHLORIDE [Concomitant]
  4. CHLORIDE [Concomitant]

REACTIONS (4)
  - ACUTE CORONARY SYNDROME [None]
  - ACUTE MYOCARDIAL INFARCTION [None]
  - ERUCTATION [None]
  - NAUSEA [None]
